FAERS Safety Report 9253153 (Version 2)
Quarter: 2013Q2

REPORT INFORMATION
  Report Type: Spontaneous
  Country: US (occurrence: US)
  Receive Date: 20130424
  Receipt Date: 20130516
  Transmission Date: 20140414
  Serious: No
  Sender: FDA-Public Use
  Company Number: US-PFIZER INC-2013123839

PATIENT
  Sex: Female

DRUGS (2)
  1. BOSULIF [Suspect]
     Indication: LEUKAEMIA
     Dosage: UNK
     Route: 048
     Dates: start: 20130413
  2. TASIGNA [Concomitant]
     Indication: LEUKAEMIA
     Dosage: UNK
     Dates: end: 20130412

REACTIONS (1)
  - Somnolence [Unknown]
